FAERS Safety Report 10666001 (Version 2)
Quarter: 2015Q1

REPORT INFORMATION
  Report Type: Spontaneous
  Country: US (occurrence: US)
  Receive Date: 20141219
  Receipt Date: 20150330
  Transmission Date: 20150720
  Serious: No
  Sender: FDA-Public Use
  Company Number: US-009507513-1411USA011525

PATIENT
  Age: 25 Year
  Sex: Female
  Weight: 78.91 kg

DRUGS (3)
  1. NEXPLANON [Suspect]
     Active Substance: ETONOGESTREL
     Indication: CONTRACEPTION
     Dosage: 1 ROD, UNK
     Route: 059
     Dates: start: 20141121, end: 20141121
  2. NEXPLANON [Suspect]
     Active Substance: ETONOGESTREL
     Dosage: 1 ROD, UNK, INSERTED IN OTHER ARM
     Route: 059
     Dates: start: 20141121
  3. NICOTINE. [Concomitant]
     Active Substance: NICOTINE
     Dosage: UNK

REACTIONS (2)
  - Device expulsion [Recovered/Resolved with Sequelae]
  - Device difficult to use [Recovered/Resolved with Sequelae]

NARRATIVE: CASE EVENT DATE: 20141121
